FAERS Safety Report 9464057 (Version 3)
Quarter: 2013Q4

REPORT INFORMATION
  Report Type: Report from Study
  Country: CA (occurrence: CA)
  Receive Date: 20130819
  Receipt Date: 20131205
  Transmission Date: 20140711
  Serious: Yes (Other)
  Sender: FDA-Public Use
  Company Number: PHHY2013CA026221

PATIENT
  Age: 76 Year
  Sex: Female

DRUGS (3)
  1. SANDOSTATIN [Suspect]
     Indication: NEUROENDOCRINE CARCINOMA METASTATIC
     Dosage: 100 UG, UKN
     Route: 058
     Dates: start: 20130305
  2. SANDOSTATIN LAR [Suspect]
     Indication: NEUROENDOCRINE CARCINOMA METASTATIC
     Dosage: 30 MG, QMO
     Route: 030
     Dates: start: 20130320
  3. FRAGMIN [Concomitant]
     Dosage: UNK UKN, UNK

REACTIONS (15)
  - Thrombosis [Unknown]
  - Dyspnoea [Unknown]
  - Lymphadenopathy [Unknown]
  - Somnolence [Unknown]
  - Local swelling [Unknown]
  - Malaise [Unknown]
  - Heart rate abnormal [Unknown]
  - Flatulence [Unknown]
  - Abdominal discomfort [Unknown]
  - Constipation [Unknown]
  - Diarrhoea [Unknown]
  - Nausea [Unknown]
  - Breast pain [Unknown]
  - Musculoskeletal chest pain [Unknown]
  - Drug ineffective [Unknown]
